FAERS Safety Report 12563803 (Version 4)
Quarter: 2021Q1

REPORT INFORMATION
  Report Type: Report from Study
  Country: None (occurrence: PR)
  Receive Date: 20160716
  Receipt Date: 20210204
  Transmission Date: 20210419
  Serious: Yes (Hospitalization, Other)
  Sender: FDA-Public Use
  Company Number: PR-ABBVIE-16K-131-1674435-00

PATIENT
  Age: 60 Year
  Sex: Male
  Weight: 119.86 kg

DRUGS (4)
  1. HUMIRA [Suspect]
     Active Substance: ADALIMUMAB
     Route: 058
  2. HUMIRA [Suspect]
     Active Substance: ADALIMUMAB
     Indication: PSORIASIS
     Route: 058
     Dates: start: 20110503
  3. HUMIRA [Suspect]
     Active Substance: ADALIMUMAB
     Route: 058
  4. TONALIN [Concomitant]
     Indication: BLOOD VISCOSITY DECREASED

REACTIONS (12)
  - Fatigue [Recovered/Resolved]
  - Cardiac dysfunction [Unknown]
  - Fluid retention [Recovering/Resolving]
  - Knee arthroplasty [Recovered/Resolved]
  - Hypotension [Recovered/Resolved]
  - Heart rate decreased [Recovered/Resolved]
  - Pulmonary oedema [Recovered/Resolved]
  - Fluid retention [Recovered/Resolved]
  - Blood viscosity increased [Recovering/Resolving]
  - Heart rate increased [Recovered/Resolved]
  - Pain [Unknown]
  - Cardiac disorder [Unknown]

NARRATIVE: CASE EVENT DATE: 201603
